FAERS Safety Report 7624714-5 (Version None)
Quarter: 2011Q3

REPORT INFORMATION
  Report Type: 
  Country: None (occurrence: None)
  Receive Date: 20110720
  Receipt Date: 20110711
  Transmission Date: 20111222
  Serious: Yes (Hospitalization)
  Sender: FDA-Public Use
  Company Number: GB-BAYER-2011-058004

PATIENT
  Age: 76 Year
  Sex: Female

DRUGS (2)
  1. PREDNISOLONE [Suspect]
     Dosage: DAILY DOSE 5 MG
  2. CIPROFLOXACIN HYDROCHLORIDE [Suspect]
     Indication: LOWER RESPIRATORY TRACT INFECTION
     Dosage: DAILY DOSE 800 MG/D

REACTIONS (3)
  - TENDON RUPTURE [None]
  - INFECTIVE EXACERBATION OF BRONCHIECTASIS [None]
  - GASTROENTERITIS VIRAL [None]
